FAERS Safety Report 9401598 (Version 2)
Quarter: 2013Q3

REPORT INFORMATION
  Report Type: Spontaneous
  Country: RU (occurrence: RU)
  Receive Date: 20130716
  Receipt Date: 20130722
  Transmission Date: 20140515
  Serious: Yes (Other)
  Sender: FDA-Public Use
  Company Number: RU-ROCHE-1248942

PATIENT
  Age: 55 Year
  Sex: Female
  Weight: 61 kg

DRUGS (3)
  1. MABTHERA [Suspect]
     Indication: SCLERODERMA
     Route: 042
     Dates: start: 20130412, end: 20130427
  2. MABTHERA [Suspect]
     Indication: OFF LABEL USE
  3. SOLU-MEDROL [Concomitant]
     Indication: SCLERODERMA
     Route: 041
     Dates: start: 20130412, end: 20130427

REACTIONS (1)
  - Myalgia [Recovered/Resolved]
